FAERS Safety Report 20189319 (Version 1)
Quarter: 2021Q4

REPORT INFORMATION
  Report Type: Spontaneous
  Country: CN (occurrence: CN)
  Receive Date: 20211215
  Receipt Date: 20211215
  Transmission Date: 20220303
  Serious: Yes (Other)
  Sender: FDA-Public Use
  Company Number: CN-GE HEALTHCARE-2021CSU006496

PATIENT

DRUGS (2)
  1. OMNIPAQUE [Suspect]
     Active Substance: IOHEXOL
     Indication: Computerised tomogram
     Dosage: 50 ML, SINGLE
     Route: 042
     Dates: start: 20211118, end: 20211118
  2. OMNIPAQUE [Suspect]
     Active Substance: IOHEXOL
     Indication: Haemangioma of liver

REACTIONS (4)
  - Blood pressure immeasurable [Recovered/Resolved]
  - Laryngeal oedema [Recovered/Resolved]
  - Asthenia [Recovered/Resolved]
  - Cold sweat [Recovered/Resolved]

NARRATIVE: CASE EVENT DATE: 20211118
